FAERS Safety Report 7099001-7 (Version None)
Quarter: 2010Q4

REPORT INFORMATION
  Report Type: 
  Country: None (occurrence: None)
  Receive Date: 20101104
  Receipt Date: 20101025
  Transmission Date: 20110411
  Serious: Yes (Other)
  Sender: FDA-Public Use
  Company Number: 2010AC000564

PATIENT
  Age: 65 Year
  Sex: Female

DRUGS (11)
  1. DIGOXIN [Suspect]
     Indication: ATRIAL TACHYCARDIA
     Dosage: 0.25 MG; QD; PO
     Route: 048
     Dates: start: 20071001, end: 20080301
  2. CELEXA [Concomitant]
  3. CLARINEX [Concomitant]
  4. PREVACID [Concomitant]
  5. ASPIRIN [Concomitant]
  6. LASIX [Concomitant]
  7. ESTRADIOL [Concomitant]
  8. XANAX [Concomitant]
  9. COREG [Concomitant]
  10. CRESTOR [Concomitant]
  11. NITROGLYCERIN [Concomitant]

REACTIONS (20)
  - ASTHENIA [None]
  - CEREBROVASCULAR ACCIDENT [None]
  - CHEST DISCOMFORT [None]
  - CHEST PAIN [None]
  - CONFUSIONAL STATE [None]
  - DECREASED APPETITE [None]
  - DISORIENTATION [None]
  - DIZZINESS [None]
  - DYSPNOEA [None]
  - EMOTIONAL DISORDER [None]
  - FATIGUE [None]
  - HEADACHE [None]
  - HYPOAESTHESIA [None]
  - MALAISE [None]
  - MENTAL DISORDER [None]
  - NAUSEA [None]
  - PAIN [None]
  - PALPITATIONS [None]
  - PRESYNCOPE [None]
  - VERTIGO [None]
